FAERS Safety Report 8760766 (Version 2)
Quarter: 2012Q4

REPORT INFORMATION
  Report Type: Report from Study
  Country: FR (occurrence: FR)
  Receive Date: 20120830
  Receipt Date: 20120919
  Transmission Date: 20130627
  Serious: Yes (Death)
  Sender: FDA-Public Use
  Company Number: FR-CELGENEUS-056-50794-12082481

PATIENT
  Age: 80 Year
  Sex: Male
  Weight: 78 kg

DRUGS (12)
  1. VIDAZA [Suspect]
     Indication: MDS
     Dosage: 120
     Route: 058
     Dates: start: 20120727, end: 20120731
  2. VIDAZA [Suspect]
     Dosage: 120
     Route: 058
     Dates: start: 20120611
  3. SECTRAL [Concomitant]
     Indication: HYPERTENSION
     Route: 048
     Dates: end: 20120820
  4. OGASTORO [Concomitant]
     Indication: GASTROESOPHAGEAL REFLUX DISEASE
     Route: 048
     Dates: end: 20120820
  5. MODOPAR [Concomitant]
     Indication: PARKINSON^S DISEASE
     Route: 048
     Dates: end: 20120820
  6. LEVOTHYROX [Concomitant]
     Indication: HYPOTHYROIDISM
     Route: 048
     Dates: end: 20120820
  7. DUPHALAC [Concomitant]
     Indication: CONSTIPATION
     Route: 048
     Dates: end: 20120820
  8. LASILIX [Concomitant]
     Indication: DRUG USE FOR UNKNOWN INDICATION
     Route: 065
  9. PERIDOPRIL [Concomitant]
     Indication: DRUG USE FOR UNKNOWN INDICATION
     Route: 065
  10. PLATELETS, CONCENTRATED [Concomitant]
     Indication: PANCYTOPENIA
     Route: 065
     Dates: start: 20120806, end: 20120806
  11. PLATELETS, CONCENTRATED [Concomitant]
     Route: 065
  12. AUGMENTIN-CIFLOX [Concomitant]
     Indication: FEVER
     Route: 065

REACTIONS (1)
  - Gastrointestinal haemorrhage [Fatal]
